FAERS Safety Report 16420929 (Version 1)
Quarter: 2019Q2

REPORT INFORMATION
  Report Type: Report from Study
  Country: US (occurrence: US)
  Receive Date: 20190612
  Receipt Date: 20190612
  Transmission Date: 20190711
  Serious: Yes (Hospitalization)
  Sender: FDA-Public Use
  Company Number: US-ASTRAZENECA-2019SE81949

PATIENT
  Sex: Female

DRUGS (3)
  1. XYZAL [Concomitant]
     Active Substance: LEVOCETIRIZINE DIHYDROCHLORIDE
  2. BENADRYL [Concomitant]
     Active Substance: DIPHENHYDRAMINE HYDROCHLORIDE
  3. FASENRA [Suspect]
     Active Substance: BENRALIZUMAB
     Dosage: 30.0MG UNKNOWN
     Route: 058
     Dates: start: 20190524

REACTIONS (13)
  - Malaise [Unknown]
  - Wheezing [Unknown]
  - Throat irritation [Unknown]
  - Pharyngeal swelling [Unknown]
  - Oropharyngeal pain [Unknown]
  - Cough [Unknown]
  - Dyspnoea [Unknown]
  - Pruritus [Unknown]
  - Asthma [Not Recovered/Not Resolved]
  - Paraesthesia [Unknown]
  - Secretion discharge [Unknown]
  - Eye swelling [Unknown]
  - Lip pruritus [Unknown]
